FAERS Safety Report 7869300-7 (Version None)
Quarter: 2011Q4

REPORT INFORMATION
  Report Type: 
  Country: None (occurrence: None)
  Receive Date: 20111028
  Receipt Date: 20101230
  Transmission Date: 20120403
  Serious: No
  Sender: FDA-Public Use
  Company Number: US-AMGEN-USASP2010012445

PATIENT
  Age: 56 Year
  Sex: Male

DRUGS (1)
  1. ENBREL [Suspect]
     Indication: RHEUMATOID ARTHRITIS
     Dosage: 50 MG, QWK
     Dates: start: 20030101

REACTIONS (8)
  - DYSPEPSIA [None]
  - SKIN ATROPHY [None]
  - ARTHRALGIA [None]
  - SURGERY [None]
  - EPISTAXIS [None]
  - HAND DEFORMITY [None]
  - FOOT DEFORMITY [None]
  - CONTUSION [None]
